FAERS Safety Report 9458221 (Version 1)
Quarter: 2013Q3

REPORT INFORMATION
  Report Type: Spontaneous
  Country: US (occurrence: US)
  Receive Date: 20130814
  Receipt Date: 20130814
  Transmission Date: 20140515
  Serious: No
  Sender: FDA-Public Use
  Company Number: US-009507513-1308USA006223

PATIENT
  Sex: Female

DRUGS (1)
  1. MIRALAX [Suspect]
     Indication: PRODUCT USED FOR UNKNOWN INDICATION
     Dosage: 8.5 G, PRN
     Route: 048
     Dates: start: 201306

REACTIONS (3)
  - Abdominal distension [Unknown]
  - Frequent bowel movements [Unknown]
  - Underdose [Unknown]
